FAERS Safety Report 10152219 (Version 1)
Quarter: 2014Q2

REPORT INFORMATION
  Report Type: Spontaneous
  Country: DE (occurrence: DE)
  Receive Date: 20140505
  Receipt Date: 20140505
  Transmission Date: 20141212
  Serious: Yes (Other)
  Sender: FDA-Public Use
  Company Number: DE-JNJFOC-20140501039

PATIENT
  Age: 76 Year
  Sex: Male
  Weight: 70 kg

DRUGS (9)
  1. XARELTO [Suspect]
     Indication: ATRIAL FIBRILLATION
     Route: 048
  2. XARELTO [Suspect]
     Indication: CEREBROVASCULAR ACCIDENT PROPHYLAXIS
     Route: 048
  3. PRADAXA [Concomitant]
     Route: 065
  4. AMLODIPINE [Concomitant]
     Route: 065
  5. CONCOR [Concomitant]
     Route: 065
  6. ATORVASTATIN [Concomitant]
     Route: 065
  7. DECORTIN [Concomitant]
     Route: 065
  8. CLOPIDOGREL [Concomitant]
     Route: 065
  9. RAMIPRIL [Concomitant]
     Route: 065

REACTIONS (4)
  - Red blood cell sedimentation rate increased [Recovering/Resolving]
  - Myalgia [Recovering/Resolving]
  - Polymyalgia rheumatica [Recovering/Resolving]
  - Insomnia [Recovering/Resolving]
